FAERS Safety Report 4591762-1 (Version None)
Quarter: 2005Q1

REPORT INFORMATION
  Report Type: 
  Country: None (occurrence: None)
  Receive Date: 20050218
  Receipt Date: 20050215
  Transmission Date: 20050727
  Serious: No
  Sender: FDA-Public Use
  Company Number: 05H-163-0289280-00

PATIENT
  Age: 59 Year
  Sex: Female

DRUGS (1)
  1. MORPHINE SULFATE [Suspect]
     Indication: POST PROCEDURAL PAIN
     Dosage: 2 MG, AS REQUIRED, INTRAVENOUS VIA PCA
     Route: 042
     Dates: start: 20041101, end: 20041101

REACTIONS (4)
  - COMA [None]
  - OVERDOSE [None]
  - RESPIRATORY DISTRESS [None]
  - SEDATION [None]
